FAERS Safety Report 9833099 (Version 2)
Quarter: 2014Q1

REPORT INFORMATION
  Report Type: Spontaneous
  Country: IQ (occurrence: IQ)
  Receive Date: 20140121
  Receipt Date: 20140131
  Transmission Date: 20141002
  Serious: Yes (Death, Hospitalization)
  Sender: FDA-Public Use
  Company Number: PHHY2014IQ005394

PATIENT
  Age: 60 Year
  Sex: Female

DRUGS (5)
  1. ACETYLSALICYLIC ACID [Suspect]
     Route: 048
  2. CLOPIDOGREL [Suspect]
  3. ENALAPRIL [Concomitant]
  4. METOPROLOL [Concomitant]
  5. ATORVASTATIN [Concomitant]
     Dosage: 40 MG, PER DAY

REACTIONS (11)
  - Death [Fatal]
  - Circulatory collapse [Unknown]
  - Thalamus haemorrhage [Unknown]
  - Headache [Unknown]
  - Hemiparesis [Unknown]
  - Depressed level of consciousness [Recovering/Resolving]
  - Quadriplegia [Unknown]
  - Extensor plantar response [Unknown]
  - Hyperreflexia [Unknown]
  - Hyporeflexia [Unknown]
  - Aphasia [Unknown]
